FAERS Safety Report 7766092-7 (Version None)
Quarter: 2011Q3

REPORT INFORMATION
  Report Type: 
  Country: None (occurrence: None)
  Receive Date: 20110921
  Receipt Date: 20110916
  Transmission Date: 20111222
  Serious: Yes (Death, Other)
  Sender: FDA-Public Use
  Company Number: US-AMGEN-QUU432025

PATIENT
  Age: 70 Year
  Sex: Male

DRUGS (2)
  1. CORTICOSTEROID NOS [Concomitant]
     Dosage: UNK UNK, UNK
     Dates: start: 20080301
  2. NPLATE [Suspect]
     Indication: IDIOPATHIC THROMBOCYTOPENIC PURPURA
     Dosage: 10 MUG/KG, UNK
     Dates: start: 20081120, end: 20090319

REACTIONS (6)
  - GRAFT VERSUS HOST DISEASE [None]
  - PNEUMONIA [None]
  - FATIGUE [None]
  - CYTOMEGALOVIRUS INFECTION [None]
  - DEATH [None]
  - ASTHENIA [None]
